FAERS Safety Report 18113479 (Version 1)
Quarter: 2020Q3

REPORT INFORMATION
  Report Type: Spontaneous
  Country: US (occurrence: US)
  Receive Date: 20200805
  Receipt Date: 20200805
  Transmission Date: 20201103
  Serious: No
  Sender: FDA-Public Use
  Company Number: US-PFIZER INC-2020296377

PATIENT
  Age: 65 Year
  Sex: Female
  Weight: 52.15 kg

DRUGS (2)
  1. IBRANCE [Suspect]
     Active Substance: PALBOCICLIB
     Indication: BREAST CANCER METASTATIC
     Dosage: 125 MG, CYCLIC (21 DAYS ON, 7 DAYS OFF)
     Route: 048
     Dates: start: 20200722
  2. VITAMIN D3 [Concomitant]
     Active Substance: CHOLECALCIFEROL
     Dosage: UNK

REACTIONS (3)
  - Peripheral swelling [Unknown]
  - Chest pain [Unknown]
  - Chest discomfort [Unknown]

NARRATIVE: CASE EVENT DATE: 20200730
